FAERS Safety Report 13502699 (Version 4)
Quarter: 2017Q3

REPORT INFORMATION
  Report Type: Spontaneous
  Country: JP (occurrence: JP)
  Receive Date: 20170502
  Receipt Date: 20170807
  Transmission Date: 20171127
  Serious: Yes (Other)
  Sender: FDA-Public Use
  Company Number: JP-TEVA-764827ROM

PATIENT
  Age: 80 Year
  Sex: Female

DRUGS (1)
  1. RISEDRONATE SODIUM - BP [Suspect]
     Active Substance: RISEDRONATE SODIUM
     Indication: OSTEOPOROSIS
     Route: 048

REACTIONS (8)
  - Hypocalcaemia [Unknown]
  - Hypophosphataemia [Unknown]
  - Dysstasia [Unknown]
  - Blood alkaline phosphatase increased [Unknown]
  - Pain in extremity [Unknown]
  - Atypical femur fracture [Recovered/Resolved]
  - Osteomalacia [Unknown]
  - Hyperparathyroidism secondary [Unknown]
